FAERS Safety Report 8598929-6 (Version None)
Quarter: 2012Q3

REPORT INFORMATION
  Report Type: 
  Country: None (occurrence: None)
  Receive Date: 20120816
  Receipt Date: 20120807
  Transmission Date: 20120928
  Serious: Yes (Death, Hospitalization)
  Sender: FDA-Public Use
  Company Number: US-CELGENEUS-163-21880-12062041

PATIENT
  Sex: Female

DRUGS (9)
  1. PEPCID AC [Concomitant]
     Dosage: 10 MILLIGRAM
     Route: 048
  2. GABAPENTIN [Concomitant]
     Dosage: 100 MILLIGRAM
     Route: 048
  3. SYNTHROID [Concomitant]
     Dosage: 88 MICROGRAM
     Route: 048
  4. REVLIMID [Suspect]
     Dosage: 10 MILLIGRAM
     Route: 048
     Dates: start: 20110930, end: 20120601
  5. DEXAMETHASONE [Concomitant]
     Dosage: 1 MILLIGRAM
     Route: 048
  6. REVLIMID [Suspect]
     Dosage: 25 MILLIGRAM
     Route: 048
     Dates: start: 20120601, end: 20120101
  7. ASPIRIN [Concomitant]
     Dosage: 81 MILLIGRAM
     Route: 048
  8. MULTI-VITAMINS [Concomitant]
     Route: 048
  9. CO Q 10 [Concomitant]
     Dosage: 100 MILLIGRAM
     Route: 048

REACTIONS (1)
  - LUNG NEOPLASM MALIGNANT [None]
